FAERS Safety Report 8508570-9 (Version None)
Quarter: 2012Q3

REPORT INFORMATION
  Report Type: 
  Country: None (occurrence: None)
  Receive Date: 20120713
  Receipt Date: 20120629
  Transmission Date: 20120928
  Serious: Yes (Hospitalization)
  Sender: FDA-Public Use
  Company Number: TR-MYLANLABS-2012S1013540

PATIENT
  Age: 45 Year
  Sex: Female

DRUGS (4)
  1. AMITRIPTYLINE HCL [Suspect]
     Indication: INTENTIONAL OVERDOSE
     Dosage: 10 MG/DAY
  2. AMITRIPTYLINE HCL [Suspect]
  3. AMITRIPTYLINE HCL [Suspect]
  4. AMITRIPTYLINE HCL [Suspect]
     Indication: MAJOR DEPRESSION
     Dosage: 10 MG/DAY

REACTIONS (8)
  - TOXICITY TO VARIOUS AGENTS [None]
  - COMA [None]
  - INTENTIONAL OVERDOSE [None]
  - SUPRAVENTRICULAR TACHYCARDIA [None]
  - AGITATION [None]
  - SPEECH DISORDER [None]
  - DYSKINESIA [None]
  - ALTERED STATE OF CONSCIOUSNESS [None]
